FAERS Safety Report 4732042-0 (Version None)
Quarter: 2005Q3

REPORT INFORMATION
  Report Type: 
  Country: None (occurrence: None)
  Receive Date: 20050725
  Receipt Date: 20040630
  Transmission Date: 20060218
  Serious: Yes (Life-Threatening)
  Sender: FDA-Public Use
  Company Number: WAES 0407USA00099

PATIENT
  Sex: Female

DRUGS (1)
  1. VIOXX [Suspect]
     Dosage: 50 MG/1X/PO
     Route: 048
     Dates: start: 20040630, end: 20040630

REACTIONS (1)
  - DRUG HYPERSENSITIVITY [None]
